FAERS Safety Report 7914693-5 (Version None)
Quarter: 2011Q4

REPORT INFORMATION
  Report Type: 
  Country: None (occurrence: None)
  Receive Date: 20111115
  Receipt Date: 20111108
  Transmission Date: 20120403
  Serious: Yes (Hospitalization)
  Sender: FDA-Public Use
  Company Number: PHEH2011US08116

PATIENT
  Age: 62 Year

DRUGS (6)
  1. RECLAST [Suspect]
     Dosage: UNK UKN, UNK
     Route: 042
  2. DEXAMETHASONE [Concomitant]
     Dosage: 0.5 MG/5 ML
  3. LISINOPRIL [Concomitant]
     Dosage: 20 MG, UNK
  4. TERAZOSIN HCL [Concomitant]
     Dosage: 5 MG, UNK
  5. CALCIUM WITH VITAMIN D [Concomitant]
  6. MULTI-VITAMINS [Concomitant]

REACTIONS (8)
  - POLLAKIURIA [None]
  - DYSSTASIA [None]
  - ADRENAL INSUFFICIENCY [None]
  - DEHYDRATION [None]
  - OSTEOPENIA [None]
  - HYPERTENSION [None]
  - ARTHRALGIA [None]
  - CRYING [None]
